FAERS Safety Report 20930845 (Version 1)
Quarter: 2022Q2

REPORT INFORMATION
  Report Type: Report from Study
  Country: FR (occurrence: FR)
  Receive Date: 20220608
  Receipt Date: 20220608
  Transmission Date: 20220721
  Serious: Yes (Other)
  Sender: FDA-Public Use
  Company Number: FR-MYLANLABS-2022M1042643

PATIENT

DRUGS (22)
  1. EVEROLIMUS [Suspect]
     Active Substance: EVEROLIMUS
     Indication: Aplasia pure red cell
     Dosage: UNK
  2. EVEROLIMUS [Suspect]
     Active Substance: EVEROLIMUS
     Indication: Condition aggravated
  3. PREDNISONE [Suspect]
     Active Substance: PREDNISONE
     Indication: Aplasia pure red cell
     Dosage: UNK
  4. PREDNISONE [Suspect]
     Active Substance: PREDNISONE
     Indication: Condition aggravated
  5. BORTEZOMIB [Suspect]
     Active Substance: BORTEZOMIB
     Indication: Aplasia pure red cell
     Dosage: UNK
  6. BORTEZOMIB [Suspect]
     Active Substance: BORTEZOMIB
     Indication: Condition aggravated
  7. DEXAMETHASONE [Suspect]
     Active Substance: DEXAMETHASONE
     Indication: Aplasia pure red cell
     Dosage: UNK
  8. DEXAMETHASONE [Suspect]
     Active Substance: DEXAMETHASONE
     Indication: Condition aggravated
  9. MYCOPHENOLATE MOFETIL [Suspect]
     Active Substance: MYCOPHENOLATE MOFETIL
     Indication: Aplasia pure red cell
     Dosage: UNK
  10. MYCOPHENOLATE MOFETIL [Suspect]
     Active Substance: MYCOPHENOLATE MOFETIL
     Indication: Condition aggravated
  11. CYCLOSPORINE [Suspect]
     Active Substance: CYCLOSPORINE
     Indication: Aplasia pure red cell
     Dosage: UNK
  12. CYCLOSPORINE [Suspect]
     Active Substance: CYCLOSPORINE
     Indication: Condition aggravated
  13. ERYTHROPOIETIN [Suspect]
     Active Substance: ERYTHROPOIETIN
     Indication: Aplasia pure red cell
     Dosage: UNK
  14. ERYTHROPOIETIN [Suspect]
     Active Substance: ERYTHROPOIETIN
     Indication: Condition aggravated
  15. HYDROXYCHLOROQUINE [Suspect]
     Active Substance: HYDROXYCHLOROQUINE
     Indication: Aplasia pure red cell
     Dosage: UNK
  16. HYDROXYCHLOROQUINE [Suspect]
     Active Substance: HYDROXYCHLOROQUINE
     Indication: Condition aggravated
  17. THYMOCYTE IMMUNE GLOBULIN NOS [Suspect]
     Active Substance: THYMOCYTE IMMUNE GLOBULIN NOS
     Indication: Aplasia pure red cell
     Dosage: UNK
  18. THYMOCYTE IMMUNE GLOBULIN NOS [Suspect]
     Active Substance: THYMOCYTE IMMUNE GLOBULIN NOS
     Indication: Condition aggravated
  19. CYCLOPHOSPHAMIDE [Suspect]
     Active Substance: CYCLOPHOSPHAMIDE
     Indication: Aplasia pure red cell
     Dosage: UNK
  20. CYCLOPHOSPHAMIDE [Suspect]
     Active Substance: CYCLOPHOSPHAMIDE
     Indication: Condition aggravated
  21. RITUXIMAB [Suspect]
     Active Substance: RITUXIMAB
     Indication: Aplasia pure red cell
     Dosage: UNK
  22. RITUXIMAB [Suspect]
     Active Substance: RITUXIMAB
     Indication: Condition aggravated

REACTIONS (2)
  - Drug ineffective [Unknown]
  - Off label use [Unknown]
